FAERS Safety Report 7060839-3 (Version None)
Quarter: 2010Q4

REPORT INFORMATION
  Report Type: 
  Country: None (occurrence: None)
  Receive Date: 20101025
  Receipt Date: 20101022
  Transmission Date: 20110411
  Serious: Yes (Death)
  Sender: FDA-Public Use
  Company Number: US-WYE-H18296510

PATIENT
  Sex: Female

DRUGS (1)
  1. RAPAMUNE [Suspect]
     Route: 065

REACTIONS (1)
  - BRAIN NEOPLASM [None]
